FAERS Safety Report 10407524 (Version 1)
Quarter: 2014Q3

REPORT INFORMATION
  Report Type: Spontaneous
  Country: AR (occurrence: AR)
  Receive Date: 20140825
  Receipt Date: 20140825
  Transmission Date: 20150326
  Serious: Yes (Other)
  Sender: FDA-Public Use
  Company Number: PHHY2014AR105797

PATIENT
  Sex: Female

DRUGS (3)
  1. TEGRETOL [Suspect]
     Active Substance: CARBAMAZEPINE
     Indication: TRIGEMINAL NEURALGIA
     Dosage: 1 DF, UNK
     Route: 048
  2. TEGRETOL [Suspect]
     Active Substance: CARBAMAZEPINE
     Indication: TRIGEMINAL NEURALGIA
     Dosage: 1 DF, UNK
     Route: 048
  3. TEGRETOL [Suspect]
     Active Substance: CARBAMAZEPINE
     Dosage: 0.25 DF, 5QD
     Route: 048

REACTIONS (3)
  - General physical health deterioration [Recovered/Resolved]
  - Malaise [Recovered/Resolved]
  - Pain [Recovered/Resolved]
